FAERS Safety Report 9562306 (Version 4)
Quarter: 2014Q1

REPORT INFORMATION
  Report Type: Report from Study
  Country: US (occurrence: US)
  Receive Date: 20130927
  Receipt Date: 20140326
  Transmission Date: 20141002
  Serious: Yes (Life-Threatening, Hospitalization, Other)
  Sender: FDA-Public Use
  Company Number: US-ABBVIE-13P-163-1099640-00

PATIENT
  Age: 55 Year
  Sex: Female
  Weight: 105.78 kg

DRUGS (6)
  1. HUMIRA [Suspect]
     Indication: PSORIASIS
     Route: 058
     Dates: start: 20100727, end: 20100727
  2. HUMIRA [Suspect]
     Route: 058
     Dates: start: 20100727, end: 20121130
  3. ENBREL [Concomitant]
     Indication: PSORIASIS
  4. ENBREL [Concomitant]
     Indication: PSORIATIC ARTHROPATHY
  5. REMICAID [Concomitant]
     Indication: PSORIASIS
  6. REMICAID [Concomitant]
     Indication: PSORIATIC ARTHROPATHY

REACTIONS (3)
  - Immune thrombocytopenic purpura [Recovered/Resolved]
  - Evans syndrome [Not Recovered/Not Resolved]
  - Lymphoid tissue hyperplasia [Recovered/Resolved]
